FAERS Safety Report 9723103 (Version 1)
Quarter: 2013Q4

REPORT INFORMATION
  Report Type: Spontaneous
  Country: US (occurrence: None)
  Receive Date: 20131127
  Receipt Date: 20131127
  Transmission Date: 20140711
  Serious: Yes (Other)
  Sender: FDA-Public Use
  Company Number: None

PATIENT
  Age: 86 Year
  Sex: Male
  Weight: 79.1 kg

DRUGS (1)
  1. MOXIFLOXACIN [Suspect]
     Indication: PNEUMONIA
     Route: 042
     Dates: start: 20131014, end: 20131014

REACTIONS (8)
  - Cardiac failure [None]
  - Pruritus [None]
  - Tachycardia [None]
  - Tachypnoea [None]
  - Blood pressure decreased [None]
  - Pulmonary embolism [None]
  - Anaphylactic reaction [None]
  - Documented hypersensitivity to administered drug [None]
